FAERS Safety Report 6758574-1 (Version None)
Quarter: 2010Q2

REPORT INFORMATION
  Report Type: 
  Country: None (occurrence: None)
  Receive Date: 20100607
  Receipt Date: 20100531
  Transmission Date: 20101027
  Serious: Yes (Other)
  Sender: FDA-Public Use
  Company Number: EG-ROCHE-701616

PATIENT
  Sex: Female
  Weight: 100 kg

DRUGS (12)
  1. TOCILIZUMAB [Suspect]
     Indication: RHEUMATOID ARTHRITIS
     Dosage: UNIT: 8 MG/KG DOSAGE FORM: INTRAVENOUS INFUSION + 100 CC NORMAL SALINE OVER 1 HOUR
     Route: 042
     Dates: start: 20100228
  2. TOCILIZUMAB [Suspect]
     Dosage: UNIT: 8 MG/KG DOSAGE FORM: INTRAVENOUS INFUSION +100 CC NORMAL SALINE OVER 1 HOUR
     Route: 042
     Dates: start: 20100327
  3. TOCILIZUMAB [Suspect]
     Dosage: UNIT: 8 MG/KG DOSAGE FORM: INTRAVENOUS INFUSION+ 100 CC NORMAL SALINE OVER 1 HOUR.
     Route: 042
     Dates: start: 20100426
  4. PREDNISOLONE [Concomitant]
     Route: 048
     Dates: start: 20100201
  5. FOLIC ACID [Concomitant]
     Dates: start: 20100201
  6. DICLOFENAC SODIUM [Concomitant]
     Dates: start: 20100101, end: 20100506
  7. DICLOFENAC SODIUM [Concomitant]
     Dosage: DOSE: 50 MG OR 75 MG.
  8. METHOTREXATE [Concomitant]
     Route: 048
     Dates: start: 20080201, end: 20100506
  9. METHOTREXATE [Concomitant]
     Route: 048
  10. ATORVASTATIN [Concomitant]
     Dosage: FREQUENCY: DAILY
     Dates: start: 20100201
  11. CALCIUM PHOSPHATE [Concomitant]
     Dates: start: 20081101
  12. LEFLUNOMIDE [Concomitant]
     Route: 048

REACTIONS (1)
  - HAEMORRHAGIC DIATHESIS [None]
